FAERS Safety Report 16086060 (Version 1)
Quarter: 2019Q1

REPORT INFORMATION
  Report Type: Report from Study
  Country: IT (occurrence: IT)
  Receive Date: 20190318
  Receipt Date: 20190318
  Transmission Date: 20190418
  Serious: Yes (Other)
  Sender: FDA-Public Use
  Company Number: IT-TEVA-2019-IT-1024602

PATIENT
  Age: 28 Year
  Sex: Female

DRUGS (3)
  1. FELISON 15 MG CAPSULE RIGIDE [Suspect]
     Active Substance: FLURAZEPAM MONOHYDROCHLORIDE
     Indication: DRUG ABUSE
     Route: 048
     Dates: start: 20190112, end: 20190112
  2. HALCION [Suspect]
     Active Substance: TRIAZOLAM
     Indication: DRUG ABUSE
     Route: 048
     Dates: start: 20190112, end: 20190112
  3. FLUOXETINE HYDROCHLORIDE. [Suspect]
     Active Substance: FLUOXETINE HYDROCHLORIDE
     Indication: DRUG ABUSE
     Route: 048
     Dates: start: 20190112, end: 20190112

REACTIONS (2)
  - Hypokinesia [Recovering/Resolving]
  - Mental impairment [Recovering/Resolving]

NARRATIVE: CASE EVENT DATE: 20190112
